FAERS Safety Report 5404835-8 (Version None)
Quarter: 2007Q3

REPORT INFORMATION
  Report Type: 
  Country: None (occurrence: None)
  Receive Date: 20070803
  Receipt Date: 20070723
  Transmission Date: 20080115
  Serious: Yes (Hospitalization, Other)
  Sender: FDA-Public Use
  Company Number: HQWYE195524JUL07

PATIENT
  Sex: Female
  Weight: 63.56 kg

DRUGS (13)
  1. PREMARIN [Suspect]
     Indication: MENOPAUSE
     Dosage: 1.25MG
     Route: 048
     Dates: start: 19920101, end: 20070201
  2. PREMARIN [Suspect]
     Dosage: 0.625 MG
     Route: 048
     Dates: start: 20070201, end: 20070701
  3. PREMARIN [Suspect]
     Dosage: TWO 0.625MG TABLETS DAILY
     Route: 048
     Dates: start: 20070701
  4. CLONIDINE [Concomitant]
  5. ATENOLOL [Concomitant]
  6. MULTI-VITAMINS [Concomitant]
     Dosage: DAILY
  7. VITAMIN B COMPLEX CAP [Concomitant]
     Dosage: UNKNOWN
  8. CALCIUM PHOSPHATE/CALCIUM SODIUM LACTATE/ERGOCALCIFEROL [Concomitant]
     Dosage: 600MG: TWICE A DAY
  9. PLAVIX [Concomitant]
     Dosage: 75MG EVERY OTHER DAY
  10. FISH OIL, HYDROGENATED [Concomitant]
     Dosage: DAILY
  11. ESTER-C [Concomitant]
     Dosage: DAILY
  12. DIOVAN [Concomitant]
     Dosage: 320MG DAILY
  13. POTASSIUM CHLORIDE [Concomitant]
     Dosage: 2-10MEG TWICE A DAY

REACTIONS (9)
  - ANEURYSM [None]
  - CEREBROVASCULAR ACCIDENT [None]
  - DRUG INEFFECTIVE [None]
  - HYPERHIDROSIS [None]
  - INTENTIONAL DRUG MISUSE [None]
  - MYOCARDIAL INFARCTION [None]
  - PHARMACEUTICAL PRODUCT COMPLAINT [None]
  - SEPSIS [None]
  - SKIN ODOUR ABNORMAL [None]
